FAERS Safety Report 5027249-1 (Version None)
Quarter: 2006Q2

REPORT INFORMATION
  Report Type: 
  Country: None (occurrence: None)
  Receive Date: 20060501
  Receipt Date: 20051230
  Transmission Date: 20061013
  Serious: No
  Sender: FDA-Public Use
  Company Number: 2006PV006484

PATIENT
  Age: 54 Year
  Sex: Male

DRUGS (2)
  1. SYMLIN [Suspect]
     Indication: DIABETES MELLITUS NON-INSULIN-DEPENDENT
     Dosage: 120 MCG, TID, SC
     Route: 058
     Dates: start: 20051201
  2. LASIX [Concomitant]

REACTIONS (3)
  - CONDITION AGGRAVATED [None]
  - LYMPHOEDEMA [None]
  - WEIGHT INCREASED [None]
